FAERS Safety Report 4388386-8 (Version None)
Quarter: 2004Q3

REPORT INFORMATION
  Report Type: 
  Country: None (occurrence: None)
  Receive Date: 20040701
  Receipt Date: 20040625
  Transmission Date: 20050211
  Serious: Yes (Other)
  Sender: FDA-Public Use
  Company Number: US-BRISTOL-MYERS SQUIBB COMPANY-12625489

PATIENT
  Age: 63 Year
  Sex: Female
  Weight: 60 kg

DRUGS (11)
  1. TAXOL [Suspect]
     Indication: OVARIAN CANCER
     Dosage: CYCLE 1: OCT-2003
     Route: 042
     Dates: start: 20040301, end: 20040301
  2. CARBOPLATIN [Suspect]
     Indication: OVARIAN CANCER
     Dosage: AUC 6; CYCLE 1: OCT-2003
     Route: 042
     Dates: start: 20040301, end: 20040301
  3. CIMETIDINE [Concomitant]
     Indication: PREMEDICATION
     Route: 042
     Dates: start: 20040301, end: 20040301
  4. BENADRYL [Concomitant]
     Indication: PREMEDICATION
     Route: 042
     Dates: start: 20040301, end: 20040301
  5. KYTRIL [Concomitant]
     Indication: PREMEDICATION
     Route: 042
     Dates: start: 20040301, end: 20040301
  6. DECADRON [Concomitant]
     Indication: PREMEDICATION
     Route: 042
     Dates: start: 20040301, end: 20040301
  7. INDOCIN [Concomitant]
  8. GLUCOPHAGE [Concomitant]
  9. ALTACE [Concomitant]
  10. NORVASC [Concomitant]
  11. EPOGEN [Concomitant]

REACTIONS (1)
  - PULMONARY FIBROSIS [None]
